FAERS Safety Report 6958520-1 (Version None)
Quarter: 2010Q3

REPORT INFORMATION
  Report Type: 
  Country: None (occurrence: None)
  Receive Date: 20100827
  Receipt Date: 20100827
  Transmission Date: 20110219
  Serious: Yes (Life-Threatening)
  Sender: FDA-Public Use
  Company Number: None

PATIENT
  Sex: Male
  Weight: 108.8633 kg

DRUGS (1)
  1. LEVAQUIN [Suspect]
     Indication: LUNG INFECTION
     Dates: start: 20100805, end: 20100815

REACTIONS (3)
  - BLISTER [None]
  - GENITAL RASH [None]
  - PURULENCE [None]
